FAERS Safety Report 6907968-X (Version None)
Quarter: 2010Q3

REPORT INFORMATION
  Report Type: 
  Country: None (occurrence: None)
  Receive Date: 20100805
  Receipt Date: 20100729
  Transmission Date: 20110219
  Serious: Yes (Death, Hospitalization)
  Sender: FDA-Public Use
  Company Number: PHHY2009IN58656

PATIENT
  Age: 58 Year
  Sex: Male

DRUGS (1)
  1. ASUNRA [Suspect]
     Dosage: 400 MG, BID
     Route: 048

REACTIONS (4)
  - CEREBRAL HAEMORRHAGE [None]
  - DIARRHOEA [None]
  - HAEMATOLOGICAL MALIGNANCY [None]
  - PYREXIA [None]
